FAERS Safety Report 5509635-6 (Version None)
Quarter: 2007Q4

REPORT INFORMATION
  Report Type: 
  Country: None (occurrence: None)
  Receive Date: 20071108
  Receipt Date: 20071030
  Transmission Date: 20080405
  Serious: Yes (Other)
  Sender: FDA-Public Use
  Company Number: PHBS2007BR17338

PATIENT
  Age: 43 Year
  Sex: Female

DRUGS (1)
  1. FORASEQ [Suspect]
     Dosage: UNK, BID
     Dates: start: 20071011, end: 20071017

REACTIONS (12)
  - BLOOD PRESSURE INCREASED [None]
  - DEVICE FAILURE [None]
  - DIABETES MELLITUS [None]
  - HYPERGLYCAEMIA [None]
  - HYPERHIDROSIS [None]
  - INSOMNIA [None]
  - IRRITABILITY [None]
  - MYDRIASIS [None]
  - NERVOUSNESS [None]
  - PERSONALITY CHANGE [None]
  - STRESS [None]
  - VISUAL DISTURBANCE [None]
